FAERS Safety Report 10168799 (Version 4)
Quarter: 2014Q3

REPORT INFORMATION
  Report Type: Spontaneous
  Country: GB (occurrence: None)
  Receive Date: 20140509
  Receipt Date: 20140730
  Transmission Date: 20150326
  Serious: Yes (Other)
  Sender: FDA-Public Use
  Company Number: AUR-APL-2014-05354

PATIENT
  Age: 73 Year
  Sex: Male

DRUGS (3)
  1. ATORVASTATIN (ATORVASTATIN) [Suspect]
     Active Substance: ATORVASTATIN
     Indication: HYPERCHOLESTEROLAEMIA
  2. PRAVASTATIN SODIUM. [Suspect]
     Active Substance: PRAVASTATIN SODIUM
     Indication: HYPERCHOLESTEROLAEMIA
  3. SIMVASTATIN FILM-COATED TABLETS 40MG (SIMVASTATIN) TABLET, 40MG? [Suspect]
     Active Substance: SIMVASTATIN
     Indication: HYPERCHOLESTEROLAEMIA

REACTIONS (9)
  - Peripheral swelling [None]
  - Drug ineffective [None]
  - Pain in extremity [None]
  - Product quality issue [None]
  - Blood test abnormal [None]
  - Gout [None]
  - Gait disturbance [None]
  - Limb discomfort [None]
  - Tenderness [None]
